FAERS Safety Report 22374574 (Version 1)
Quarter: 2023Q2

REPORT INFORMATION
  Report Type: Spontaneous
  Country: NO (occurrence: NO)
  Receive Date: 20230526
  Receipt Date: 20230526
  Transmission Date: 20230722
  Serious: Yes (Other)
  Sender: FDA-Public Use
  Company Number: NO-ROCHE-3194623

PATIENT
  Sex: Male

DRUGS (24)
  1. DOXORUBICIN [Suspect]
     Active Substance: DOXORUBICIN
     Indication: Diffuse large B-cell lymphoma
     Dosage: UNK (1ST SYSTEMIC TREATMENT)
     Route: 065
     Dates: start: 20101006, end: 20110112
  2. DOXORUBICIN [Suspect]
     Active Substance: DOXORUBICIN
     Dosage: UNK (4TH SYSTEMIC TREATMENT)
     Route: 065
     Dates: start: 20160118, end: 20160302
  3. RITUXIMAB [Suspect]
     Active Substance: RITUXIMAB
     Indication: Diffuse large B-cell lymphoma
     Dosage: UNK (1ST SYSTEMIC TREATMENT)
     Route: 065
     Dates: start: 20101006, end: 20110112
  4. RITUXIMAB [Suspect]
     Active Substance: RITUXIMAB
     Dosage: UNK (2ND SYSTEMIC TREATMENT)
     Route: 065
     Dates: start: 20120419, end: 20120620
  5. RITUXIMAB [Suspect]
     Active Substance: RITUXIMAB
     Dosage: UNK (3RD SYSTEMIC TREATMENT)
     Route: 065
     Dates: start: 20130629, end: 20131122
  6. RITUXIMAB [Suspect]
     Active Substance: RITUXIMAB
     Dosage: UNK (4TH SYSTEMIC TREATMENT)
     Route: 065
     Dates: start: 20160118, end: 20160302
  7. DEXAMETHASONE [Suspect]
     Active Substance: DEXAMETHASONE
     Indication: Diffuse large B-cell lymphoma
     Dosage: UNK
     Route: 065
  8. ETOPOSIDE [Suspect]
     Active Substance: ETOPOSIDE
     Indication: Diffuse large B-cell lymphoma
     Dosage: UNK (2ND SYSTEMIC TREATMENT)
     Route: 065
     Dates: start: 20120419, end: 20120620
  9. ETOPOSIDE [Suspect]
     Active Substance: ETOPOSIDE
     Dosage: UNK (3RD SYSTEMIC TREATMENT)
     Route: 065
     Dates: start: 20130629, end: 20131122
  10. METHOTREXATE [Suspect]
     Active Substance: METHOTREXATE
     Indication: Diffuse large B-cell lymphoma
     Dosage: UNK (3RD SYSTEMIC TREATMENT)
     Route: 065
     Dates: start: 20130629, end: 20131122
  11. GEMCITABINE [Suspect]
     Active Substance: GEMCITABINE
     Indication: Diffuse large B-cell lymphoma
     Dosage: UNK
     Route: 065
     Dates: start: 20211105, end: 20220204
  12. CISPLATIN [Suspect]
     Active Substance: CISPLATIN
     Indication: Diffuse large B-cell lymphoma
     Dosage: UNK
     Route: 065
  13. VINCRISTINE [Suspect]
     Active Substance: VINCRISTINE
     Indication: Diffuse large B-cell lymphoma
     Dosage: UNK (1ST SYSTEMIC TREATMENT)
     Route: 065
     Dates: start: 20101006, end: 20110112
  14. VINCRISTINE [Suspect]
     Active Substance: VINCRISTINE
     Dosage: UNK (4TH SYSTEMIC TREATMENT)
     Route: 065
     Dates: start: 20160118, end: 20160302
  15. BENDAMUSTINE [Suspect]
     Active Substance: BENDAMUSTINE
     Indication: Diffuse large B-cell lymphoma
     Dosage: UNK
     Route: 065
  16. POLATUZUMAB VEDOTIN [Suspect]
     Active Substance: POLATUZUMAB VEDOTIN
     Indication: Diffuse large B-cell lymphoma
     Dosage: UNK
     Route: 065
     Dates: start: 20220601, end: 20220811
  17. POLATUZUMAB VEDOTIN [Suspect]
     Active Substance: POLATUZUMAB VEDOTIN
     Dosage: UNK (5TH LINE SYSTEMIC TREATMENT)
     Route: 065
     Dates: start: 20230202, end: 20230503
  18. PREDNISONE [Suspect]
     Active Substance: PREDNISONE
     Indication: Diffuse large B-cell lymphoma
     Dosage: UNK (1ST SYSTEMIC TREATMENT)
     Route: 065
     Dates: start: 20101006, end: 20110112
  19. PREDNISONE [Suspect]
     Active Substance: PREDNISONE
     Dosage: UNK (4TH SYSTEMIC TREATMENT)
     Route: 065
     Dates: start: 20160118, end: 20160302
  20. CYCLOPHOSPHAMIDE [Suspect]
     Active Substance: CYCLOPHOSPHAMIDE
     Indication: Diffuse large B-cell lymphoma
     Dosage: UNK (1ST SYSTEMIC TREATMENT)
     Route: 065
     Dates: start: 20101006, end: 20110112
  21. CYCLOPHOSPHAMIDE [Suspect]
     Active Substance: CYCLOPHOSPHAMIDE
     Dosage: UNK (4TH SYSTEMIC TREATMENT)
     Route: 065
     Dates: start: 20160118, end: 20160302
  22. IFOSFAMIDE [Suspect]
     Active Substance: IFOSFAMIDE
     Indication: Diffuse large B-cell lymphoma
     Dosage: UNK (3RD SYSTEMIC TREATMENT)
     Route: 065
     Dates: start: 20130629, end: 20131122
  23. BLEOMYCIN [Suspect]
     Active Substance: BLEOMYCIN SULFATE
     Indication: Diffuse large B-cell lymphoma
     Dosage: UNK (2ND SYSTEMIC TREATMENT)
     Route: 065
     Dates: start: 20120419, end: 20120620
  24. CYTARABINE [Suspect]
     Active Substance: CYTARABINE
     Indication: Diffuse large B-cell lymphoma
     Dosage: UNK (2ND SYSTEMIC TREATMENT)
     Route: 065
     Dates: start: 20120419, end: 20120620

REACTIONS (2)
  - Disease progression [Unknown]
  - Blood lactate dehydrogenase increased [Unknown]
